FAERS Safety Report 8785350 (Version 2)
Quarter: 2012Q4

REPORT INFORMATION
  Report Type: Spontaneous
  Country: None (occurrence: None)
  Receive Date: 20120904
  Receipt Date: 20121019
  Transmission Date: 20130627
  Serious: Yes (Other)
  Sender: FDA-Public Use
  Company Number: AUR-APL-2012-03611

PATIENT
  Age: 63 Year
  Sex: Male

DRUGS (4)
  1. AMLODIPINE (AMLODIPINE) [Suspect]
     Indication: BLOOD PRESSURE
  2. LOSARTAN [Suspect]
     Indication: BLOOD PRESSURE
     Route: 048
  3. AMLODIPINE BESILATE [Concomitant]
  4. COZAAR (LOSARTAN POTASSIUM) [Concomitant]

REACTIONS (9)
  - Chest pain [None]
  - Tracheal disorder [None]
  - Dyspnoea [None]
  - Product quality issue [None]
  - Mouth ulceration [None]
  - Chest pain [None]
  - Productive cough [None]
  - Product substitution issue [None]
  - Chest discomfort [None]
